FAERS Safety Report 10552446 (Version 1)
Quarter: 2014Q4

REPORT INFORMATION
  Report Type: Spontaneous
  Country: US (occurrence: None)
  Receive Date: 20141028
  Receipt Date: 20141028
  Transmission Date: 20150529
  Serious: Yes (Hospitalization)
  Sender: FDA-Public Use
  Company Number: None

PATIENT
  Age: 65 Year
  Sex: Male
  Weight: 53.6 kg

DRUGS (1)
  1. WARFARIN [Suspect]
     Active Substance: WARFARIN
     Indication: PERIPHERAL VASCULAR DISORDER
     Dates: start: 20140515, end: 20140707

REACTIONS (6)
  - Gastrointestinal haemorrhage [None]
  - International normalised ratio decreased [None]
  - Anaemia [None]
  - Haemoglobin decreased [None]
  - International normalised ratio increased [None]
  - Heart rate increased [None]

NARRATIVE: CASE EVENT DATE: 20140707
